FAERS Safety Report 20920921 (Version 1)
Quarter: 2022Q2

REPORT INFORMATION
  Report Type: Spontaneous
  Country: CN (occurrence: CN)
  Receive Date: 20220606
  Receipt Date: 20220606
  Transmission Date: 20220721
  Serious: Yes (Other)
  Sender: FDA-Public Use
  Company Number: CN-PFIZER INC-202200789347

PATIENT
  Age: 67 Year
  Weight: 62.5 kg

DRUGS (3)
  1. EPIRUBICIN [Suspect]
     Active Substance: EPIRUBICIN
     Indication: Hepatic cancer
     Dosage: 30.000 MG, 1X/DAY
     Dates: start: 20220428, end: 20220428
  2. OXALIPLATIN [Suspect]
     Active Substance: OXALIPLATIN
     Indication: Hepatic cancer
     Dosage: 50.000 MG, 1X/DAY
     Dates: start: 20220428, end: 20220428
  3. IODINE [Concomitant]
     Active Substance: IODINE
     Indication: Hepatic cancer
     Dosage: 10 ML, 1X/DAY
     Dates: start: 20220428, end: 20220428

REACTIONS (3)
  - White blood cell count decreased [Recovering/Resolving]
  - Granulocyte count decreased [Recovering/Resolving]
  - Platelet count decreased [Recovering/Resolving]

NARRATIVE: CASE EVENT DATE: 20220430
